FAERS Safety Report 17417603 (Version 2)
Quarter: 2020Q1

REPORT INFORMATION
  Report Type: Spontaneous
  Country: US (occurrence: US)
  Receive Date: 20200214
  Receipt Date: 20200319
  Transmission Date: 20200409
  Serious: Yes (Hospitalization)
  Sender: FDA-Public Use
  Company Number: US-ENDO PHARMACEUTICALS INC-2019-111089

PATIENT
  Age: 1 Year
  Sex: Male

DRUGS (1)
  1. VIGABATRIN. [Suspect]
     Active Substance: VIGABATRIN
     Indication: PRODUCT USED FOR UNKNOWN INDICATION
     Dosage: 16.5 ML, UNKNOWN
     Route: 065

REACTIONS (2)
  - Gastroenteritis viral [Unknown]
  - Dehydration [Unknown]

NARRATIVE: CASE EVENT DATE: 201911
